FAERS Safety Report 12290253 (Version 2)
Quarter: 2016Q2

REPORT INFORMATION
  Report Type: Report from Study
  Country: US (occurrence: US)
  Receive Date: 20160421
  Receipt Date: 20160429
  Transmission Date: 20160815
  Serious: Yes (Hospitalization, Other)
  Sender: FDA-Public Use
  Company Number: US-GILEAD-2016-0209632

PATIENT
  Age: 79 Year
  Sex: Female

DRUGS (14)
  1. DEMADEX [Concomitant]
     Active Substance: TORSEMIDE
  2. AMBRISENTAN [Suspect]
     Active Substance: AMBRISENTAN
     Indication: PRODUCT USED FOR UNKNOWN INDICATION
     Dosage: 5 MG, QD
     Route: 065
     Dates: start: 201506
  3. CALTRATE                           /00944201/ [Concomitant]
  4. TIKOSYN [Concomitant]
     Active Substance: DOFETILIDE
  5. PROTONIX                           /00661201/ [Concomitant]
     Active Substance: OMEPRAZOLE
  6. LEVOTHYROXINE. [Concomitant]
     Active Substance: LEVOTHYROXINE
  7. VITAMIN D3 [Concomitant]
     Active Substance: CHOLECALCIFEROL
  8. ASPIRIN                            /00002701/ [Concomitant]
     Active Substance: ASPIRIN
  9. PLAVIX [Concomitant]
     Active Substance: CLOPIDOGREL BISULFATE
  10. COMBIVENT [Concomitant]
     Active Substance: ALBUTEROL SULFATE\IPRATROPIUM BROMIDE
  11. DIGOXIN. [Concomitant]
     Active Substance: DIGOXIN
  12. ADCIRCA [Concomitant]
     Active Substance: TADALAFIL
  13. VITAMIN B12 [Concomitant]
     Active Substance: CYANOCOBALAMIN
  14. ALDACTONE [Concomitant]
     Active Substance: SPIRONOLACTONE

REACTIONS (4)
  - Pulmonary oedema [Unknown]
  - Oedema peripheral [Unknown]
  - Localised infection [Recovered/Resolved]
  - Cardiac failure congestive [Recovered/Resolved]

NARRATIVE: CASE EVENT DATE: 201601
